FAERS Safety Report 15837099 (Version 2)
Quarter: 2019Q1

REPORT INFORMATION
  Report Type: Spontaneous
  Country: JP (occurrence: JP)
  Receive Date: 20190117
  Receipt Date: 20190201
  Transmission Date: 20190417
  Serious: Yes (Hospitalization)
  Sender: FDA-Public Use
  Company Number: JP-BAYER-2019-007814

PATIENT
  Age: 70 Year
  Sex: Male

DRUGS (10)
  1. LOSARTAN. [Concomitant]
     Active Substance: LOSARTAN
     Dosage: DAILY DOSE 25 MG
     Dates: start: 2015
  2. METHOTREXATE. [Concomitant]
     Active Substance: METHOTREXATE
     Indication: RHEUMATOID ARTHRITIS
     Dosage: DAILY DOSE 8 MG
  3. BAYASPIRIN 100 MG [Interacting]
     Active Substance: ASPIRIN
     Indication: CORONARY ANGIOPLASTY
  4. SPIRONOLACTONE. [Concomitant]
     Active Substance: SPIRONOLACTONE
  5. BAYASPIRIN 100 MG [Suspect]
     Active Substance: ASPIRIN
     Indication: ACUTE MYOCARDIAL INFARCTION
     Dosage: UNK
     Dates: start: 2015
  6. CLOPIDOGREL [Interacting]
     Active Substance: CLOPIDOGREL BISULFATE
     Indication: CORONARY ANGIOPLASTY
  7. BISOPROLOL [Concomitant]
     Active Substance: BISOPROLOL
  8. CLOPIDOGREL [Interacting]
     Active Substance: CLOPIDOGREL BISULFATE
     Indication: ACUTE MYOCARDIAL INFARCTION
     Dosage: DAILY DOSE 75 MG
     Dates: start: 2015
  9. SALAZOSULFAPYRIDINE [Concomitant]
     Active Substance: SULFASALAZINE
     Indication: RHEUMATOID ARTHRITIS
     Dosage: DAILY DOSE 500 MG
  10. APIXABAN [Suspect]
     Active Substance: APIXABAN
     Dosage: DAILY DOSE 5 MG
     Dates: start: 2015

REACTIONS (4)
  - Pericardial cyst [Recovered/Resolved]
  - Pericarditis constrictive [None]
  - Haemorrhagic cyst [Recovered/Resolved]
  - Labelled drug-drug interaction medication error [None]
